FAERS Safety Report 20455565 (Version 1)
Quarter: 2022Q1

REPORT INFORMATION
  Report Type: Spontaneous
  Country: US (occurrence: US)
  Receive Date: 20220210
  Receipt Date: 20220210
  Transmission Date: 20220423
  Serious: No
  Sender: FDA-Public Use
  Company Number: US-BAYER-2022A021234

PATIENT
  Age: 49 Year
  Sex: Male

DRUGS (4)
  1. KERENDIA [Suspect]
     Active Substance: FINERENONE
     Dosage: UNK
     Dates: start: 202111
  2. DESCOVY [Concomitant]
     Active Substance: EMTRICITABINE\TENOFOVIR ALAFENAMIDE FUMARATE
  3. TRULICITY [Concomitant]
     Active Substance: DULAGLUTIDE
  4. TOUJEO [Concomitant]
     Active Substance: INSULIN GLARGINE

REACTIONS (1)
  - Oedema [Not Recovered/Not Resolved]

NARRATIVE: CASE EVENT DATE: 20220209
